FAERS Safety Report 6046678-0 (Version None)
Quarter: 2009Q1

REPORT INFORMATION
  Report Type: 
  Country: None (occurrence: None)
  Receive Date: 20090122
  Receipt Date: 20090120
  Transmission Date: 20090719
  Serious: Yes (Hospitalization)
  Sender: FDA-Public Use
  Company Number: ES-ASTRAZENECA-2009AC00414

PATIENT
  Age: 84 Year
  Sex: Male
  Weight: 74 kg

DRUGS (7)
  1. ATACAND [Suspect]
     Indication: HYPERTENSION
     Route: 048
     Dates: start: 20071009, end: 20071029
  2. ATORVASTATIN CALCIUM [Concomitant]
     Indication: HYPERLIPIDAEMIA
  3. OMEPRAZOLE [Concomitant]
     Indication: PROPHYLAXIS
  4. ALOPURINOL [Concomitant]
     Indication: HYPERURICAEMIA
  5. AMLODIPINE [Concomitant]
     Indication: HYPERTENSION
  6. TAMSULOSIN HCL [Concomitant]
     Indication: BENIGN PROSTATIC HYPERPLASIA
  7. ACETYLSALICYLIC ACID SRT [Concomitant]
     Indication: PROPHYLAXIS

REACTIONS (2)
  - HEPATIC FUNCTION ABNORMAL [None]
  - HEPATITIS TOXIC [None]
